FAERS Safety Report 8227011-2 (Version None)
Quarter: 2012Q1

REPORT INFORMATION
  Report Type: 
  Country: None (occurrence: None)
  Receive Date: 20120322
  Receipt Date: 20120319
  Transmission Date: 20120608
  Serious: No
  Sender: FDA-Public Use
  Company Number: US-PFIZER INC-2012071227

PATIENT
  Sex: Female
  Weight: 55.78 kg

DRUGS (1)
  1. FLECTOR [Suspect]
     Indication: ARTHRITIS
     Dosage: UNK, 2X/DAY
     Route: 061
     Dates: start: 20120316, end: 20120318

REACTIONS (1)
  - SOMNOLENCE [None]
